FAERS Safety Report 6911207-3 (Version None)
Quarter: 2010Q3

REPORT INFORMATION
  Report Type: 
  Country: None (occurrence: None)
  Receive Date: 20100806
  Receipt Date: 20100727
  Transmission Date: 20110219
  Serious: Yes (Other)
  Sender: FDA-Public Use
  Company Number: US-ABBOTT-10P-163-0661242-00

PATIENT
  Sex: Female

DRUGS (2)
  1. OMNICEF [Suspect]
     Indication: SINUSITIS
     Route: 048
     Dates: start: 20060401, end: 20060401
  2. OMNICEF [Suspect]
     Indication: MIDDLE EAR EFFUSION

REACTIONS (2)
  - DIARRHOEA [None]
  - URTICARIA [None]
